FAERS Safety Report 24747325 (Version 1)
Quarter: 2024Q4

REPORT INFORMATION
  Report Type: Spontaneous
  Country: US (occurrence: US)
  Receive Date: 20241218
  Receipt Date: 20241218
  Transmission Date: 20250115
  Serious: Yes (Other)
  Sender: AMGEN
  Company Number: US-AMGEN-USASP2024244802

PATIENT

DRUGS (4)
  1. CARFILZOMIB [Suspect]
     Active Substance: CARFILZOMIB
     Indication: Plasma cell myeloma
     Dosage: UNK, 20-36 MG/M^2 , (DAYS 1, 2, 8, 9, 15, 16)
     Route: 040
  2. CARFILZOMIB [Suspect]
     Active Substance: CARFILZOMIB
     Dosage: UNK, FOR CYCLES 8-24, KRD WAS GIVEN WITH A MODIFIED CFZ SCHEDULE (D1, 2, 15, 16)
     Route: 040
  3. LENALIDOMIDE [Suspect]
     Active Substance: LENALIDOMIDE
     Indication: Plasma cell myeloma
     Dosage: 25 MILLIGRAM, (D1-21)
     Route: 048
  4. DEXAMETHASONE [Suspect]
     Active Substance: DEXAMETHASONE
     Indication: Plasma cell myeloma
     Dosage: UNK, QWK, 40/20 MG, (CYCLES 1-4/5-8)
     Route: 048

REACTIONS (2)
  - Minimal residual disease [Unknown]
  - Plasma cell myeloma [Unknown]
